FAERS Safety Report 4542403-0 (Version None)
Quarter: 2004Q4

REPORT INFORMATION
  Report Type: 
  Country: None (occurrence: None)
  Receive Date: 20041230
  Receipt Date: 20041208
  Transmission Date: 20050328
  Serious: Yes (Hospitalization, Other)
  Sender: FDA-Public Use
  Company Number: CA-ABBOTT-04P-028-0282939-00

PATIENT
  Sex: Male
  Weight: 83 kg

DRUGS (17)
  1. HUMIRA [Suspect]
     Indication: RHEUMATOID ARTHRITIS
     Route: 058
     Dates: start: 20040819, end: 20041111
  2. PREDNISONE [Concomitant]
     Indication: RHEUMATOID ARTHRITIS
     Dates: start: 20040510, end: 20041202
  3. PREDNISONE [Concomitant]
     Dates: start: 20041203, end: 20041206
  4. PREDNISONE [Concomitant]
     Route: 048
     Dates: start: 20041221
  5. RAMIPRIL [Concomitant]
     Indication: HYPERTENSION
     Dates: start: 19990301
  6. ACETYLSALICYLIC ACID SRT [Concomitant]
     Indication: THROMBOSIS PROPHYLAXIS
     Dates: start: 19990301, end: 20041202
  7. ACETYLSALICYLIC ACID SRT [Concomitant]
     Dates: start: 20041203
  8. ATORVASTATIN [Concomitant]
     Indication: HYPERLIPIDAEMIA
     Dates: start: 19990101
  9. ES MOTRIN [Concomitant]
     Indication: RHEUMATOID ARTHRITIS
     Dates: start: 20040501
  10. LEFLUNOMIDE [Concomitant]
     Indication: RHEUMATOID ARTHRITIS
     Dates: start: 20040426, end: 20041202
  11. HYDROXYCHLOROQUINE PHOSPHATE [Concomitant]
     Indication: RHEUMATOID ARTHRITIS
     Dates: start: 19951127, end: 20041202
  12. FOLIC ACID [Concomitant]
     Indication: VITAMIN SUPPLEMENTATION
     Dates: start: 19950221
  13. CALCIUM [Concomitant]
     Indication: MINERAL SUPPLEMENTATION
     Dates: start: 19950101
  14. HALIBUT LIVER OIL [Concomitant]
     Indication: MEDICAL DIET
     Dates: start: 19950221
  15. ALENDRONATE SODIUM [Concomitant]
     Indication: OSTEOPOROSIS
     Dates: start: 19980612
  16. BISOPROLOL FUMARATE [Concomitant]
     Indication: HYPERTENSION
     Dates: start: 20020101
  17. METHYLPREDNISOLONE ACETATE [Concomitant]
     Indication: ARTHRALGIA
     Route: 014
     Dates: start: 20041021, end: 20041021

REACTIONS (7)
  - ACQUIRED HAEMOPHILIA [None]
  - ECCHYMOSIS [None]
  - FACTOR VIII DEFICIENCY [None]
  - JOINT EFFUSION [None]
  - MOUTH HAEMORRHAGE [None]
  - OEDEMA PERIPHERAL [None]
  - PAIN IN EXTREMITY [None]
